FAERS Safety Report 6140142-6 (Version None)
Quarter: 2009Q2

REPORT INFORMATION
  Report Type: 
  Country: None (occurrence: None)
  Receive Date: 20090401
  Receipt Date: 20090330
  Transmission Date: 20091009
  Serious: Yes (Other)
  Sender: FDA-Public Use
  Company Number: NL-BRISTOL-MYERS SQUIBB COMPANY-14564991

PATIENT
  Age: 64 Year
  Sex: Female

DRUGS (1)
  1. TRIAMCINOLONE ACETONIDE [Suspect]
     Dosage: TRIAMCINOLONE (10MG/ML)
     Route: 014
     Dates: start: 20090215

REACTIONS (1)
  - HEPATITIS [None]
